FAERS Safety Report 16041363 (Version 1)
Quarter: 2019Q1

REPORT INFORMATION
  Report Type: Spontaneous
  Country: US (occurrence: US)
  Receive Date: 20190306
  Receipt Date: 20190306
  Transmission Date: 20190418
  Serious: No
  Sender: FDA-Public Use
  Company Number: US-AKORN PHARMACEUTICALS-2018AKN02069

PATIENT
  Age: 18 Year
  Sex: Female
  Weight: 65.76 kg

DRUGS (7)
  1. BETAMETHASONE DIPROPIONATE. [Concomitant]
     Active Substance: BETAMETHASONE DIPROPIONATE
     Dosage: TWICE DAILY AS NEEDED
  2. CLARITIN-D 24 HOUR [Concomitant]
     Active Substance: LORATADINE\PSEUDOEPHEDRINE SULFATE
     Dosage: 1 TABLET AS NEEDED
  3. SOLODYN [Concomitant]
     Active Substance: MINOCYCLINE HYDROCHLORIDE
     Dosage: 65 MG, 1X/DAY
  4. MYORISAN [Suspect]
     Active Substance: ISOTRETINOIN
     Indication: ACNE
     Dosage: 40 MG, 1X/DAY
     Route: 048
     Dates: start: 20181120, end: 20181215
  5. ZOFRAN [Concomitant]
     Active Substance: ONDANSETRON HYDROCHLORIDE
     Dosage: 1 TABLETS, 3X/DAY
  6. RETIN-A MICOR PUMP [Concomitant]
     Dosage: UNK UNK, 1X/DAY
  7. SOLODYN [Concomitant]
     Active Substance: MINOCYCLINE HYDROCHLORIDE
     Dosage: 80 MG, 1X/DAY

REACTIONS (8)
  - Post inflammatory pigmentation change [Unknown]
  - Dry skin [Unknown]
  - Nausea [Unknown]
  - Off label use [Recovered/Resolved]
  - Chapped lips [Unknown]
  - Pharyngitis streptococcal [Unknown]
  - Contraindicated product administered [Recovered/Resolved]
  - Migraine [Recovered/Resolved]

NARRATIVE: CASE EVENT DATE: 2018
